FAERS Safety Report 4412626-X (Version None)
Quarter: 2004Q2

REPORT INFORMATION
  Report Type: 
  Country: None (occurrence: None)
  Receive Date: 20040630
  Receipt Date: 20040303
  Transmission Date: 20050107
  Serious: No
  Sender: FDA-Public Use
  Company Number: 04P-163-0252079-00

PATIENT
  Age: 61 Year
  Sex: Female
  Weight: 79.3795 kg

DRUGS (7)
  1. HUMIRA [Suspect]
     Indication: RHEUMATOID ARTHRITIS
     Dosage: 40 MG 1 IN 2 WK SUBCUTANEOUS
     Route: 058
     Dates: start: 20030919, end: 20040216
  2. AZITHROMYCIN [Concomitant]
  3. LEVOFLOXACIN [Concomitant]
  4. ALBUTEROL [Concomitant]
  5. SERETIDE MITE [Concomitant]
  6. GLIBOMET [Concomitant]
  7. HOLOTUSSIN DM [Concomitant]

REACTIONS (1)
  - ASTHMA [None]
